FAERS Safety Report 8616092-X (Version None)
Quarter: 2012Q3

REPORT INFORMATION
  Report Type: 
  Country: None (occurrence: None)
  Receive Date: 20120823
  Receipt Date: 20120815
  Transmission Date: 20120928
  Serious: Yes (Hospitalization, Disabling, Other)
  Sender: FDA-Public Use
  Company Number: US-009507513-1206USA04642

PATIENT

DRUGS (5)
  1. ACTONEL [Suspect]
     Indication: OSTEOPOROSIS
     Dosage: UNK
     Dates: start: 20030101, end: 20090101
  2. VITAMINS (UNSPECIFIED) [Concomitant]
     Indication: VITAMIN D DEFICIENCY
  3. FOSAMAX [Suspect]
     Indication: OSTEOPOROSIS
     Dosage: 70 MG, UNK
     Route: 048
  4. FOSAMAX [Suspect]
     Indication: OSTEOPENIA
  5. CALCIUM (UNSPECIFIED) [Concomitant]
     Indication: CALCIUM DEFICIENCY

REACTIONS (22)
  - OSTEOPOROSIS [None]
  - LOW TURNOVER OSTEOPATHY [None]
  - BUNDLE BRANCH BLOCK RIGHT [None]
  - PERNICIOUS ANAEMIA [None]
  - HYPERTENSION [None]
  - HYPERCHOLESTEROLAEMIA [None]
  - FEMUR FRACTURE [None]
  - WRIST FRACTURE [None]
  - UPPER LIMB FRACTURE [None]
  - RHEUMATOID ARTHRITIS [None]
  - CORONARY ARTERY DISEASE [None]
  - FRACTURE NONUNION [None]
  - STRESS FRACTURE [None]
  - BACK DISORDER [None]
  - OSTEONECROSIS OF JAW [None]
  - OPEN REDUCTION OF FRACTURE [None]
  - BONE GRAFT [None]
  - ANXIETY [None]
  - FALL [None]
  - BACK INJURY [None]
  - DEPRESSION [None]
  - DEVICE MALFUNCTION [None]
